FAERS Safety Report 9574884 (Version 2)
Quarter: 2013Q4

REPORT INFORMATION
  Report Type: Spontaneous
  Country: FR (occurrence: FR)
  Receive Date: 20131001
  Receipt Date: 20131001
  Transmission Date: 20140711
  Serious: Yes (Other)
  Sender: FDA-Public Use
  Company Number: FR-ABBVIE-13P-056-1148760-00

PATIENT
  Sex: Female

DRUGS (4)
  1. HUMIRA [Suspect]
     Indication: CROHN^S DISEASE
     Route: 058
     Dates: start: 201205
  2. HUMIRA [Suspect]
  3. CIFLOX [Concomitant]
     Indication: FLATULENCE
  4. CIFLOX [Concomitant]
     Indication: DIARRHOEA

REACTIONS (4)
  - Ileal fistula [Unknown]
  - Cell death [Unknown]
  - Hepatocellular injury [Not Recovered/Not Resolved]
  - Liver function test abnormal [Unknown]
